FAERS Safety Report 12418703 (Version 1)
Quarter: 2016Q2

REPORT INFORMATION
  Report Type: Spontaneous
  Country: US (occurrence: US)
  Receive Date: 20160531
  Receipt Date: 20160531
  Transmission Date: 20160815
  Serious: No
  Sender: FDA-Public Use
  Company Number: US-BAYER-2016-103832

PATIENT
  Age: 81 Year
  Sex: Female
  Weight: 38.55 kg

DRUGS (3)
  1. LISINOPRIL. [Concomitant]
     Active Substance: LISINOPRIL
  2. SYNTHROID [Concomitant]
     Active Substance: LEVOTHYROXINE SODIUM
  3. MIRALAX [Suspect]
     Active Substance: POLYETHYLENE GLYCOL 3350
     Indication: CONSTIPATION
     Dosage: 1/4 TEASPOON, ONCE
     Route: 048
     Dates: start: 20160524, end: 20160524

REACTIONS (1)
  - Product use issue [None]

NARRATIVE: CASE EVENT DATE: 20160524
